FAERS Safety Report 23152792 (Version 2)
Quarter: 2023Q4

REPORT INFORMATION
  Report Type: Spontaneous
  Country: ES (occurrence: None)
  Receive Date: 20231107
  Receipt Date: 20231114
  Transmission Date: 20240110
  Serious: Yes (Other)
  Sender: FDA-Public Use
  Company Number: ES-ROCHE-3449129

PATIENT
  Age: 62 Year
  Sex: Female

DRUGS (9)
  1. VABYSMO [Suspect]
     Active Substance: FARICIMAB\FARICIMAB-SVOA
     Indication: Macular oedema
     Dosage: 1 UNIT 6 MG/0.05 ML
     Route: 050
     Dates: start: 20231010
  2. VABYSMO [Suspect]
     Active Substance: FARICIMAB\FARICIMAB-SVOA
     Indication: Macular telangiectasia
  3. FLUVASTATIN [Concomitant]
     Active Substance: FLUVASTATIN SODIUM
  4. LORMETAZEPAM [Concomitant]
     Active Substance: LORMETAZEPAM
  5. DORZOLAMIDE\TIMOLOL [Concomitant]
     Active Substance: DORZOLAMIDE\TIMOLOL
  6. CITICOLINE [Concomitant]
     Active Substance: CITICOLINE
  7. NAPROXEN [Concomitant]
     Active Substance: NAPROXEN
  8. OZURDEX [Concomitant]
     Active Substance: DEXAMETHASONE
  9. AFLIBERCEPT [Concomitant]
     Active Substance: AFLIBERCEPT

REACTIONS (1)
  - Inflammation [Recovering/Resolving]

NARRATIVE: CASE EVENT DATE: 20231014
